FAERS Safety Report 7460814-0 (Version None)
Quarter: 2011Q2

REPORT INFORMATION
  Report Type: 
  Country: None (occurrence: None)
  Receive Date: 20110427
  Receipt Date: 20110415
  Transmission Date: 20111010
  Serious: Yes (Hospitalization)
  Sender: FDA-Public Use
  Company Number: US-2011-10231

PATIENT
  Age: 73 Year
  Sex: Male

DRUGS (10)
  1. OXYCONTIN [Concomitant]
  2. DOCUSATE (DOCUSATE) [Concomitant]
  3. POTASSIUM CHLORIDE [Concomitant]
  4. PRILOSEC (OMEPRAZOLE MAGNESIUM) [Concomitant]
  5. BUSULFAN [Suspect]
     Indication: STEM CELL TRANSPLANT
     Dosage: 77 MG MILLIGRAM(S),367 MG MILLIGRAM(S), DAILY  INTRAVENOUS
     Route: 042
     Dates: start: 20110311, end: 20110311
  6. CYCLOPHOSPHAMIDE [Concomitant]
  7. MAGNESIUM OXIDE (MAGNESIUM OXIDE) [Concomitant]
  8. ETOPOSIDE [Concomitant]
  9. REGLAN (METOCIOPRAMIDE) [Concomitant]
  10. CEPHALEXIN [Concomitant]

REACTIONS (3)
  - BLISTER [None]
  - SKIN BURNING SENSATION [None]
  - OEDEMA PERIPHERAL [None]
